FAERS Safety Report 4506997-3 (Version None)
Quarter: 2004Q4

REPORT INFORMATION
  Report Type: 
  Country: None (occurrence: None)
  Receive Date: 20041117
  Receipt Date: 20041105
  Transmission Date: 20050328
  Serious: Yes (Hospitalization)
  Sender: FDA-Public Use
  Company Number: 2004-BP-11398YA

PATIENT
  Age: 41 Year
  Sex: Male

DRUGS (6)
  1. HARNAL             (TAMSULOSIN) [Suspect]
     Dosage: 0.2 MG PO
     Route: 048
     Dates: end: 20041021
  2. DANTRIUM [Suspect]
     Dosage: 25 MG PO
     Route: 048
  3. LIORESAL [Suspect]
     Dosage: 5 MG PO
     Route: 048
  4. TIZANIDINE HCL [Suspect]
     Dosage: 1 MG PO
     Route: 048
  5. VITAMEDIN (BENFOTIAMINE/B6/B12) [Concomitant]
     Route: 048
  6. DIAZEPAM [Concomitant]

REACTIONS (6)
  - ALANINE AMINOTRANSFERASE INCREASED [None]
  - ASPARTATE AMINOTRANSFERASE INCREASED [None]
  - BLOOD BILIRUBIN INCREASED [None]
  - BLOOD LACTATE DEHYDROGENASE INCREASED [None]
  - GAMMA-GLUTAMYLTRANSFERASE INCREASED [None]
  - HEPATIC FUNCTION ABNORMAL [None]
